FAERS Safety Report 6025272-1 (Version None)
Quarter: 2008Q4

REPORT INFORMATION
  Report Type: 
  Country: None (occurrence: None)
  Receive Date: 20081231
  Receipt Date: 20081223
  Transmission Date: 20090506
  Serious: Yes (Other)
  Sender: FDA-Public Use
  Company Number: PHBS2008ES06720

PATIENT
  Age: 42 Year
  Sex: Female

DRUGS (1)
  1. ZOLEDRONIC ACID [Suspect]
     Indication: BREAST CANCER

REACTIONS (9)
  - BONE DISORDER [None]
  - DENTAL FISTULA [None]
  - GINGIVAL INFECTION [None]
  - OSTEONECROSIS [None]
  - PAIN [None]
  - PARAESTHESIA [None]
  - SWELLING [None]
  - SWELLING FACE [None]
  - TOOTH LOSS [None]
